FAERS Safety Report 8233136-8 (Version None)
Quarter: 2012Q1

REPORT INFORMATION
  Report Type: 
  Country: None (occurrence: None)
  Receive Date: 20120326
  Receipt Date: 20120321
  Transmission Date: 20120608
  Serious: Yes (Other)
  Sender: FDA-Public Use
  Company Number: US-PFIZER INC-2012073978

PATIENT
  Sex: Female
  Weight: 159 kg

DRUGS (1)
  1. PREMARIN [Suspect]
     Indication: HORMONE REPLACEMENT THERAPY
     Dosage: UNK, DAILY

REACTIONS (2)
  - WEIGHT INCREASED [None]
  - BREAST CANCER FEMALE [None]
